FAERS Safety Report 5028476-X (Version None)
Quarter: 2006Q2

REPORT INFORMATION
  Report Type: 
  Country: None (occurrence: None)
  Receive Date: 20060617
  Receipt Date: 20060608
  Transmission Date: 20061013
  Serious: Yes (Other)
  Sender: FDA-Public Use
  Company Number: FR-GLAXOSMITHKLINE-B0427014A

PATIENT
  Age: 18 Month

DRUGS (3)
  1. ZOVIRAX [Suspect]
     Indication: ANTIVIRAL PROPHYLAXIS
     Dosage: 200MG FOUR TIMES PER DAY
     Route: 048
     Dates: start: 20060101
  2. BACTRIM [Suspect]
     Indication: PROPHYLAXIS
     Route: 065
     Dates: start: 20060101, end: 20060523
  3. NEXIUM [Suspect]
     Indication: PROPHYLAXIS
     Route: 065
     Dates: start: 20060501

REACTIONS (3)
  - AGRANULOCYTOSIS [None]
  - HAEMATOCHEZIA [None]
  - STRESS ULCER [None]
